FAERS Safety Report 22135101 (Version 1)
Quarter: 2023Q1

REPORT INFORMATION
  Report Type: Spontaneous
  Country: US (occurrence: US)
  Receive Date: 20230324
  Receipt Date: 20230324
  Transmission Date: 20230417
  Serious: Yes (Death)
  Sender: FDA-Public Use
  Company Number: US-PADAGIS-2023PAD00364

PATIENT

DRUGS (2)
  1. TESTOSTERONE [Suspect]
     Active Substance: TESTOSTERONE
     Indication: Blood testosterone decreased
     Dosage: UNK (TRANSDERMAL GEL)
     Route: 062
  2. TESTOSTERONE [Suspect]
     Active Substance: TESTOSTERONE
     Dosage: UNK (INJECTION)
     Route: 065

REACTIONS (1)
  - Hepatocellular carcinoma [Fatal]
